FAERS Safety Report 10780320 (Version 1)
Quarter: 2015Q1

REPORT INFORMATION
  Report Type: Spontaneous
  Country: US (occurrence: US)
  Receive Date: 20150210
  Receipt Date: 20150210
  Transmission Date: 20150721
  Serious: No
  Sender: FDA-Public Use
  Company Number: US-GLAXOSMITHKLINE-A1077435A

PATIENT

DRUGS (2)
  1. UNKNOWN PRESCRIPTION CREAM [Concomitant]
     Indication: ACNE
     Route: 065
  2. TYKERB [Suspect]
     Active Substance: LAPATINIB DITOSYLATE
     Indication: BREAST CANCER
     Route: 065
     Dates: start: 201402

REACTIONS (1)
  - Acne [Not Recovered/Not Resolved]
